FAERS Safety Report 20423450 (Version 1)
Quarter: 2022Q1

REPORT INFORMATION
  Report Type: Spontaneous
  Country: CA (occurrence: CA)
  Receive Date: 20220203
  Receipt Date: 20220203
  Transmission Date: 20220423
  Serious: Yes (Hospitalization)
  Sender: FDA-Public Use
  Company Number: CA-PFIZER INC-202200173490

PATIENT
  Age: 17 Year
  Sex: Male
  Weight: 53 kg

DRUGS (12)
  1. METHOTREXATE SODIUM [Suspect]
     Active Substance: METHOTREXATE SODIUM
     Dosage: 6 ML
     Route: 037
  2. METHOTREXATE SODIUM [Suspect]
     Active Substance: METHOTREXATE SODIUM
     Dosage: UNK
  3. METHOTREXATE SODIUM [Suspect]
     Active Substance: METHOTREXATE SODIUM
     Dosage: 0.8 G
     Route: 041
  4. GABAPENTIN [Concomitant]
     Active Substance: GABAPENTIN
  5. LEUCOVORIN [Concomitant]
     Active Substance: LEUCOVORIN
  6. MELATONIN [Concomitant]
     Active Substance: MELATONIN
  7. MERCAPTOPURINE [Concomitant]
     Active Substance: MERCAPTOPURINE
  8. ONDANSETRON [Concomitant]
     Active Substance: ONDANSETRON
  9. POTASSIUM [Concomitant]
     Active Substance: POTASSIUM
  10. RANITIDINE [Concomitant]
     Active Substance: RANITIDINE
  11. VALACYCLOVIR [Concomitant]
     Active Substance: VALACYCLOVIR HYDROCHLORIDE
  12. VINCRISTINE SULFATE [Concomitant]
     Active Substance: VINCRISTINE SULFATE

REACTIONS (4)
  - Dysphagia [Recovered/Resolved]
  - Fluid intake reduced [Recovered/Resolved]
  - Hypophagia [Recovered/Resolved]
  - Stomatitis [Recovered/Resolved]
